FAERS Safety Report 7830453-8 (Version None)
Quarter: 2011Q4

REPORT INFORMATION
  Report Type: 
  Country: None (occurrence: None)
  Receive Date: 20111021
  Receipt Date: 20111018
  Transmission Date: 20120403
  Serious: Yes (Death, Life-Threatening, Hospitalization, Other)
  Sender: FDA-Public Use
  Company Number: US-ACTELION-A-US2011-52530

PATIENT

DRUGS (5)
  1. TRACLEER [Suspect]
     Indication: PULMONARY ARTERIAL HYPERTENSION
     Dosage: 125 MG, BID
     Route: 048
     Dates: start: 20090301, end: 20110708
  2. VIAGRA [Concomitant]
  3. REVATIO [Concomitant]
  4. COUMADIN [Concomitant]
  5. TRACLEER [Suspect]
     Dosage: 62.5 MG, BID
     Route: 048
     Dates: start: 20090201, end: 20090301

REACTIONS (3)
  - HYPOXIA [None]
  - RESPIRATORY FAILURE [None]
  - PULMONARY ARTERIAL HYPERTENSION [None]
